FAERS Safety Report 9570478 (Version 2)
Quarter: 2013Q4

REPORT INFORMATION
  Report Type: Spontaneous
  Country: AR (occurrence: AR)
  Receive Date: 20131001
  Receipt Date: 20131031
  Transmission Date: 20140711
  Serious: Yes (Other)
  Sender: FDA-Public Use
  Company Number: AR-AMGEN-ARGSP2013068495

PATIENT
  Age: 64 Year
  Sex: Female

DRUGS (3)
  1. ENBREL [Suspect]
     Indication: RHEUMATOID ARTHRITIS
     Dosage: 50 MG, WEEKLY
     Route: 058
     Dates: start: 20040728
  2. CORTIPYREN                         /00008501/ [Concomitant]
     Dosage: 8 MG, 1X/DAY
     Route: 048
     Dates: start: 2004
  3. LEVOTHYROXINE [Concomitant]
     Indication: HYPOTHYROIDISM
     Dosage: UNK
     Route: 048
     Dates: start: 1995

REACTIONS (5)
  - Arthropathy [Recovered/Resolved]
  - Hip fracture [Unknown]
  - Osteonecrosis [Unknown]
  - Device related infection [Recovered/Resolved]
  - Drug ineffective [Unknown]
